FAERS Safety Report 5804221-2 (Version None)
Quarter: 2008Q3

REPORT INFORMATION
  Report Type: 
  Country: None (occurrence: None)
  Receive Date: 20080707
  Receipt Date: 20080625
  Transmission Date: 20090109
  Serious: Yes (Other)
  Sender: FDA-Public Use
  Company Number: 2008SP012721

PATIENT
  Age: 68 Year
  Sex: Male
  Weight: 71.5 kg

DRUGS (1)
  1. INTRON A [Suspect]
     Indication: MALIGNANT MELANOMA
     Dosage: 3 MIU; TIW; SC
     Route: 058
     Dates: start: 20070903

REACTIONS (1)
  - PROSTATIC SPECIFIC ANTIGEN INCREASED [None]
